FAERS Safety Report 6653509-4 (Version None)
Quarter: 2010Q1

REPORT INFORMATION
  Report Type: 
  Country: None (occurrence: None)
  Receive Date: 20100326
  Receipt Date: 20100111
  Transmission Date: 20100710
  Serious: Yes (Hospitalization)
  Sender: FDA-Public Use
  Company Number: GB-TEVA-228538ISR

PATIENT
  Sex: Male

DRUGS (18)
  1. PREDNISOLONE [Suspect]
     Indication: PROSTATE CANCER
     Route: 048
     Dates: start: 20090107
  2. ABIRATERONE ACETATE OR PLACEBO [Suspect]
     Indication: PROSTATE CANCER
     Route: 048
     Dates: start: 20090107
  3. ZOLEDRONIC ACID [Concomitant]
     Indication: CANCER PAIN
     Route: 042
     Dates: start: 20080214
  4. NIFEDIPINE [Concomitant]
     Indication: HYPERTENSION
     Route: 048
     Dates: start: 19981201
  5. LISINOPRIL [Concomitant]
     Indication: HYPERTENSION
     Route: 048
     Dates: start: 20010901, end: 20090721
  6. LISINOPRIL [Concomitant]
     Route: 048
     Dates: start: 20090904
  7. OMEPRAZOLE [Concomitant]
     Indication: PROPHYLAXIS
     Route: 048
     Dates: start: 20071001
  8. AMITRIPTYLINE HCL [Concomitant]
     Indication: CANCER PAIN
     Route: 048
     Dates: start: 20081001
  9. TRAMADOL HCL [Concomitant]
     Indication: CANCER PAIN
     Route: 048
     Dates: start: 20080201
  10. PARACETAMOL [Concomitant]
     Indication: CANCER PAIN
     Route: 048
     Dates: start: 20080201
  11. PARACETAMOL [Concomitant]
  12. FENTANYL [Concomitant]
     Indication: CANCER PAIN
     Route: 061
     Dates: start: 20090623
  13. LEKOVIT CA [Concomitant]
     Indication: MINERAL SUPPLEMENTATION
     Route: 048
     Dates: start: 20080101
  14. LEKOVIT CA [Concomitant]
     Indication: CANCER PAIN
  15. DICLOFENAC [Concomitant]
     Indication: CANCER PAIN
     Route: 048
     Dates: start: 20090121
  16. GOSERELIN [Concomitant]
     Indication: HORMONE THERAPY
     Route: 058
     Dates: start: 20090107
  17. METOCLOPRAMIDE [Concomitant]
     Indication: PROPHYLAXIS OF NAUSEA AND VOMITING
     Route: 048
     Dates: start: 20081229
  18. MOVICOL [Concomitant]
     Indication: CONSTIPATION PROPHYLAXIS
     Route: 048
     Dates: start: 20081229

REACTIONS (2)
  - ENTERITIS [None]
  - ENTEROCOLITIS INFECTIOUS [None]
